FAERS Safety Report 23101003 (Version 4)
Quarter: 2023Q4

REPORT INFORMATION
  Report Type: Report from Study
  Country: CN (occurrence: CN)
  Receive Date: 20231024
  Receipt Date: 20231201
  Transmission Date: 20240110
  Serious: Yes (Hospitalization)
  Sender: FDA-Public Use
  Company Number: CN-JNJFOC-20231042603

PATIENT
  Age: 27 Year
  Sex: Female
  Weight: 49.5 kg

DRUGS (3)
  1. GUSELKUMAB [Suspect]
     Active Substance: GUSELKUMAB
     Indication: Crohn^s disease
     Dosage: IV 200MG
     Route: 065
     Dates: start: 20220718, end: 20230914
  2. GUSELKUMAB [Suspect]
     Active Substance: GUSELKUMAB
     Route: 058
  3. GUSELKUMAB [Suspect]
     Active Substance: GUSELKUMAB
     Route: 058

REACTIONS (1)
  - Pyrexia [Recovered/Resolved]

NARRATIVE: CASE EVENT DATE: 20231008
